FAERS Safety Report 7703102-7 (Version None)
Quarter: 2011Q3

REPORT INFORMATION
  Report Type: 
  Country: None (occurrence: None)
  Receive Date: 20110823
  Receipt Date: 20110815
  Transmission Date: 20111222
  Serious: Yes (Hospitalization)
  Sender: FDA-Public Use
  Company Number: US-ASTELLAS-2011US004988

PATIENT

DRUGS (23)
  1. LAMICTAL [Concomitant]
     Indication: RESTLESS LEGS SYNDROME
     Dosage: 400 MG, UID/QD
     Route: 048
     Dates: start: 20050101
  2. CLARITIN [Concomitant]
     Indication: HYPERSENSITIVITY
     Dosage: 10 MG, UID/QD
     Route: 048
     Dates: start: 19980101
  3. CELLCEPT [Concomitant]
     Indication: RENAL TRANSPLANT
     Dosage: 500 MG, BID
     Route: 048
     Dates: start: 20100829
  4. LANTUS [Concomitant]
     Indication: BLOOD INSULIN
     Dosage: 25 U, UID/QD
     Route: 065
  5. ZETIA [Concomitant]
     Indication: BLOOD CHOLESTEROL
     Dosage: 10 MG, UID/QD
     Route: 048
     Dates: start: 19950101
  6. LASIX [Concomitant]
     Indication: FLUID RETENTION
     Dosage: 20 MG, BID
     Route: 048
     Dates: start: 20100601
  7. ATARAX [Concomitant]
     Indication: PRURITUS
     Dosage: 25 MG, PRN
     Route: 048
     Dates: start: 20040101
  8. DETROL [Concomitant]
     Indication: INCONTINENCE
     Dosage: 4 MG, UID/QD
     Route: 048
     Dates: start: 19980101
  9. PREDNISONE [Concomitant]
     Indication: RENAL TRANSPLANT
     Dosage: O
     Route: 048
     Dates: start: 20100829
  10. SIMAVASTATIN [Concomitant]
     Indication: BLOOD CHOLESTEROL
     Dosage: 3 MG, UID/QD
     Route: 048
  11. PROGRAF [Suspect]
     Indication: RENAL TRANSPLANT
     Dosage: 3 MG, UID/QD
     Route: 048
     Dates: start: 20100829
  12. PROTONIX [Concomitant]
     Indication: GASTRIC PH DECREASED
     Dosage: 40 MG, BID
     Route: 048
  13. CARAFATE [Concomitant]
     Indication: PRODUCT USED FOR UNKNOWN INDICATION
     Dosage: 1 G, TID
     Route: 048
     Dates: start: 20110401
  14. BACTRIM DS [Concomitant]
     Indication: INFECTION
     Dosage: 1 DF, UID/QD
     Route: 048
     Dates: start: 20100829
  15. MIRAPEX [Concomitant]
     Indication: RESTLESS LEGS SYNDROME
     Dosage: 0.5 MG, UID/QD
     Route: 048
     Dates: start: 20050101
  16. COREG [Concomitant]
     Indication: CARDIAC DISORDER
     Dosage: 6.25 MG, BID
     Route: 048
     Dates: start: 19900101
  17. HUMALOG [Concomitant]
     Indication: BLOOD INSULIN
     Dosage: UNK
     Route: 065
  18. PERCOCET [Concomitant]
     Indication: PAIN
     Dosage: 1 DF, PRN
     Route: 048
     Dates: start: 20010101
  19. CLONAZEPAM [Concomitant]
     Indication: MUSCLE SPASMS
     Dosage: 0.5 MG, PRN
     Route: 048
     Dates: start: 20040101
  20. NORVASC [Concomitant]
     Indication: RENAL TRANSPLANT
     Dosage: O
     Route: 048
     Dates: start: 20100829
  21. SYNTHROID [Concomitant]
     Indication: THYROID DISORDER
     Dosage: 0.025 MG, UID/QD
     Route: 048
     Dates: start: 20030101
  22. NYSTATIN [Concomitant]
     Indication: INFECTION
     Dosage: UNK
     Route: 061
     Dates: start: 20110301
  23. FOLIC ACID [Concomitant]
     Indication: PRODUCT USED FOR UNKNOWN INDICATION
     Dosage: 1 MG, UID/QD
     Route: 048
     Dates: start: 20100601

REACTIONS (2)
  - HOSPITALISATION [None]
  - ANKLE FRACTURE [None]
